FAERS Safety Report 17916725 (Version 1)
Quarter: 2020Q2

REPORT INFORMATION
  Report Type: Spontaneous
  Country: ES (occurrence: ES)
  Receive Date: 20200619
  Receipt Date: 20200619
  Transmission Date: 20200714
  Serious: Yes (Life-Threatening, Hospitalization, Disabling)
  Sender: FDA-Public Use
  Company Number: ES-BAUSCH-BL-2020-017447

PATIENT
  Age: 39 Year
  Sex: Female

DRUGS (2)
  1. VANCOMICINA [Suspect]
     Active Substance: VANCOMYCIN
     Indication: HAEMODIALYSIS COMPLICATION
     Route: 042
     Dates: start: 20161122, end: 20161209
  2. GENTAMICINA [Suspect]
     Active Substance: GENTAMICIN
     Indication: HAEMODIALYSIS COMPLICATION
     Dosage: SERVING DOSE: 50 MG-MILLIGRAMS/ FREQUENCY UNIT: TOTAL
     Route: 042
     Dates: start: 20161209, end: 20161209

REACTIONS (1)
  - Toxic epidermal necrolysis [Recovered/Resolved with Sequelae]

NARRATIVE: CASE EVENT DATE: 20161209
